FAERS Safety Report 10620142 (Version 2)
Quarter: 2015Q2

REPORT INFORMATION
  Report Type: Spontaneous
  Country: US (occurrence: US)
  Receive Date: 20141202
  Receipt Date: 20150513
  Transmission Date: 20150821
  Serious: No
  Sender: FDA-Public Use
  Company Number: US-PURDUE-USA-2014-0118756

PATIENT
  Age: 65 Year
  Sex: Male

DRUGS (1)
  1. INTERMEZZO [Suspect]
     Active Substance: ZOLPIDEM TARTRATE
     Indication: MIDDLE INSOMNIA
     Dosage: 1.75 MG, HS
     Route: 060

REACTIONS (2)
  - Drug ineffective [Unknown]
  - Product solubility abnormal [Unknown]
